FAERS Safety Report 24417399 (Version 2)
Quarter: 2024Q4

REPORT INFORMATION
  Report Type: Spontaneous
  Country: US (occurrence: US)
  Receive Date: 20241009
  Receipt Date: 20241023
  Transmission Date: 20250114
  Serious: Yes (Hospitalization, Other)
  Sender: DOMPE FARMACEUTICI
  Company Number: US-FARMAPROD-202410-3418

PATIENT
  Sex: Female
  Weight: 61.69 kg

DRUGS (9)
  1. OXERVATE [Suspect]
     Active Substance: CENEGERMIN-BKBJ
     Indication: Neurotrophic keratopathy
     Route: 047
     Dates: start: 20240819
  2. OMEPRAZOLE [Concomitant]
     Active Substance: OMEPRAZOLE
  3. SULFAMETHOXAZOLE\TRIMETHOPRIM [Concomitant]
     Active Substance: SULFAMETHOXAZOLE\TRIMETHOPRIM
  4. PREDNISONE [Concomitant]
     Active Substance: PREDNISONE
  5. VITAMIN B12 [Concomitant]
     Active Substance: CYANOCOBALAMIN
  6. LEVOTHYROXINE SODIUM [Concomitant]
     Active Substance: LEVOTHYROXINE SODIUM
  7. GABAPENTIN [Concomitant]
     Active Substance: GABAPENTIN
  8. FLAXSSED OIL [Concomitant]
  9. FOLATE SODIUM [Concomitant]
     Active Substance: FOLATE SODIUM

REACTIONS (3)
  - Pneumonia [Unknown]
  - Cerebrovascular accident [Unknown]
  - Product dose omission issue [Unknown]
